FAERS Safety Report 23879953 (Version 2)
Quarter: 2024Q2

REPORT INFORMATION
  Report Type: Spontaneous
  Country: US (occurrence: US)
  Receive Date: 20240521
  Receipt Date: 20240603
  Transmission Date: 20240716
  Serious: No
  Sender: FDA-Public Use
  Company Number: US-BAYER-2024A070847

PATIENT
  Age: 57 Year
  Sex: Female

DRUGS (1)
  1. CLIMARA PRO [Suspect]
     Active Substance: ESTRADIOL\LEVONORGESTREL
     Indication: Hormone therapy
     Dosage: UNK
     Route: 062
     Dates: start: 20240521, end: 20240522

REACTIONS (3)
  - Wrong technique in device usage process [None]
  - Product adhesion issue [None]
  - Application site erythema [None]
